FAERS Safety Report 6091992-6 (Version None)
Quarter: 2009Q1

REPORT INFORMATION
  Report Type: 
  Country: None (occurrence: None)
  Receive Date: 20090225
  Receipt Date: 20081125
  Transmission Date: 20090719
  Serious: Yes (Other)
  Sender: FDA-Public Use
  Company Number: A0758580A

PATIENT
  Sex: Male

DRUGS (2)
  1. VALTREX [Suspect]
     Dosage: 2G TWICE PER DAY
     Route: 048
  2. CONCURRENT MEDICATIONS [Concomitant]

REACTIONS (2)
  - ALANINE AMINOTRANSFERASE INCREASED [None]
  - ASPARTATE AMINOTRANSFERASE INCREASED [None]
